FAERS Safety Report 14530769 (Version 2)
Quarter: 2018Q1

REPORT INFORMATION
  Report Type: Spontaneous
  Country: IL (occurrence: IL)
  Receive Date: 20180214
  Receipt Date: 20180313
  Transmission Date: 20180509
  Serious: Yes (Other)
  Sender: FDA-Public Use
  Company Number: PHHY2018IL022065

PATIENT
  Sex: Female

DRUGS (2)
  1. SIGNIFOR LAR [Suspect]
     Active Substance: PASIREOTIDE
     Dosage: 40 MG, (EVERY 6 WEEKS)
     Route: 065
  2. SIGNIFOR LAR [Suspect]
     Active Substance: PASIREOTIDE
     Indication: PRODUCT USED FOR UNKNOWN INDICATION
     Dosage: 40 MG, QMO
     Route: 065

REACTIONS (3)
  - Blood glucose increased [Unknown]
  - Inappropriate schedule of drug administration [Unknown]
  - Diabetes mellitus [Recovering/Resolving]
